FAERS Safety Report 13055137 (Version 2)
Quarter: 2017Q1

REPORT INFORMATION
  Report Type: Spontaneous
  Country: US (occurrence: US)
  Receive Date: 20161222
  Receipt Date: 20170306
  Transmission Date: 20170428
  Serious: No
  Sender: FDA-Public Use
  Company Number: US-PFIZER INC-2016587036

PATIENT
  Age: 62 Year
  Sex: Male
  Weight: 70.31 kg

DRUGS (1)
  1. LYRICA [Suspect]
     Active Substance: PREGABALIN
     Indication: NEUROPATHY PERIPHERAL
     Dosage: 150 MG, 1X/DAY (QHS)
     Route: 048

REACTIONS (2)
  - Bronchitis [Recovered/Resolved]
  - Intentional product use issue [Unknown]
